FAERS Safety Report 7381148-9 (Version None)
Quarter: 2011Q1

REPORT INFORMATION
  Report Type: 
  Country: None (occurrence: None)
  Receive Date: 20110329
  Receipt Date: 20110222
  Transmission Date: 20110831
  Serious: No
  Sender: FDA-Public Use
  Company Number: US-AMGEN-USASP2011010377

PATIENT
  Sex: Female

DRUGS (5)
  1. SENSIPAR [Suspect]
     Dosage: 30 MG, BID
     Dates: start: 20101126
  2. SENSIPAR [Suspect]
     Indication: HYPERPARATHYROIDISM SECONDARY
     Dosage: 90 MG, QOD
  3. FOSRENOL [Concomitant]
     Dosage: UNK
  4. ZEMPLAR [Concomitant]
     Dosage: UNK
  5. RENVELA [Concomitant]
     Dosage: UNK

REACTIONS (1)
  - DRUG INEFFECTIVE [None]
